FAERS Safety Report 8082032-8 (Version None)
Quarter: 2012Q1

REPORT INFORMATION
  Report Type: 
  Country: None (occurrence: None)
  Receive Date: 20120130
  Receipt Date: 20120123
  Transmission Date: 20120608
  Serious: Yes (Other)
  Sender: FDA-Public Use
  Company Number: PHHY2012KR006120

PATIENT
  Age: 36 Year
  Sex: Male

DRUGS (8)
  1. CLINDAMYCIN [Suspect]
  2. CIPROFLOXACIN [Suspect]
  3. CLONAZEPAM [Suspect]
  4. METRONIDAZOLE [Suspect]
  5. HERBAL PREPARATION [Suspect]
  6. TIZANIDINE HCL [Suspect]
  7. MEROPENEM [Suspect]
  8. IMIPENEM [Suspect]

REACTIONS (1)
  - LIVER INJURY [None]
